FAERS Safety Report 10103410 (Version 2)
Quarter: 2014Q2

REPORT INFORMATION
  Report Type: Other
  Country: US (occurrence: US)
  Receive Date: 20140424
  Receipt Date: 20140626
  Transmission Date: 20141212
  Serious: Yes (Hospitalization, Other)
  Sender: FDA-Public Use
  Company Number: US-GSKPPD-2014GSK000195

PATIENT
  Age: 57 Year
  Sex: Male
  Weight: 85.62 kg

DRUGS (7)
  1. AVANDIA [Suspect]
     Indication: DIABETES MELLITUS
     Route: 048
     Dates: start: 20001207, end: 20060119
  2. ASPIRIN [Concomitant]
  3. PLAVIX [Concomitant]
  4. ALTACE [Concomitant]
  5. COREG [Concomitant]
  6. LASIX [Concomitant]
  7. LISINOPRIL [Concomitant]

REACTIONS (1)
  - Myocardial infarction [Recovered/Resolved]
